FAERS Safety Report 16850722 (Version 1)
Quarter: 2019Q3

REPORT INFORMATION
  Report Type: Spontaneous
  Country: US (occurrence: US)
  Receive Date: 20190925
  Receipt Date: 20190925
  Transmission Date: 20191005
  Serious: No
  Sender: FDA-Public Use
  Company Number: US-THERAPEUTICSMD-2019TMD01729

PATIENT
  Age: 49 Year
  Sex: Female
  Weight: 145.13 kg

DRUGS (2)
  1. LOTS OF UNSPECIFIED MEDICATIONS [Concomitant]
  2. IMVEXXY [Suspect]
     Active Substance: ESTRADIOL
     Indication: VULVOVAGINAL DRYNESS
     Dosage: 4 ?G, 1X/DAY AT BEDTIME
     Route: 067
     Dates: start: 201906, end: 20190628

REACTIONS (6)
  - Pain [Recovered/Resolved]
  - Peripheral swelling [Recovering/Resolving]
  - Joint swelling [Recovering/Resolving]
  - Discomfort [Unknown]
  - Paraesthesia [Unknown]
  - Off label use [Recovered/Resolved]

NARRATIVE: CASE EVENT DATE: 201906
